FAERS Safety Report 25623515 (Version 1)
Quarter: 2025Q3

REPORT INFORMATION
  Report Type: Spontaneous
  Country: US (occurrence: None)
  Receive Date: 20250730
  Receipt Date: 20250730
  Transmission Date: 20251021
  Serious: Yes (Hospitalization)
  Sender: FDA-CTU
  Company Number: None

PATIENT
  Age: 42 Year
  Sex: Female
  Weight: 76.5 kg

DRUGS (5)
  1. 7-HYDROXYMITRAGYNINE [Suspect]
     Active Substance: 7-HYDROXYMITRAGYNINE
     Indication: Back pain
     Dosage: 3 TABLET(S) EVERY 4 HOURSE ORAL ?
     Route: 048
     Dates: start: 20200420, end: 20250718
  2. 7-HYDROXYMITRAGYNINE [Suspect]
     Active Substance: 7-HYDROXYMITRAGYNINE
     Indication: Arthritis
  3. Suboxone (bupenephrine) [Concomitant]
  4. DULOXETINE [Concomitant]
     Active Substance: DULOXETINE
  5. VITAMIN D3 [Concomitant]
     Active Substance: CHOLECALCIFEROL

REACTIONS (1)
  - Drug dependence [None]

NARRATIVE: CASE EVENT DATE: 20250313
